FAERS Safety Report 9322055 (Version 1)
Quarter: 2013Q2

REPORT INFORMATION
  Report Type: Spontaneous
  Country: US (occurrence: None)
  Receive Date: 20130529
  Receipt Date: 20130529
  Transmission Date: 20140414
  Serious: Yes (Other)
  Sender: FDA-Public Use
  Company Number: 2013P1006268

PATIENT
  Age: 70 Year
  Sex: Male

DRUGS (2)
  1. INFUMORPH [Suspect]
  2. BUPIVACAINE [Suspect]

REACTIONS (1)
  - Device occlusion [None]
